FAERS Safety Report 9282117 (Version 1)
Quarter: 2013Q2

REPORT INFORMATION
  Report Type: Spontaneous
  Country: US (occurrence: None)
  Receive Date: 20130508
  Receipt Date: 20130508
  Transmission Date: 20140414
  Serious: Yes (Hospitalization)
  Sender: FDA-Public Use
  Company Number: None

PATIENT
  Age: 43 Year
  Sex: Female
  Weight: 46.27 kg

DRUGS (20)
  1. TACROLIMUS [Suspect]
     Indication: IMMUNOSUPPRESSION
     Dosage: 1.5MG/1MG Q12H PO?SINCE 2003
     Route: 048
     Dates: start: 2003
  2. VANCOMYCIN [Concomitant]
  3. WARFARIN [Concomitant]
  4. ACETAMINOPHEN [Concomitant]
  5. CALCIUM CARBONATE [Concomitant]
  6. CITALOPRAM [Concomitant]
  7. DOCUSATE [Concomitant]
  8. FERROUS SULFATE [Concomitant]
  9. LANSOPRAZOLE [Concomitant]
  10. LEVETIRACETAM [Concomitant]
  11. LEVOTHYROXINE [Concomitant]
  12. LORAZEPAM [Concomitant]
  13. MIDODRINE [Concomitant]
  14. MULTIVITAMIN [Concomitant]
  15. ONDANSETRON [Concomitant]
  16. OXYCODONE [Concomitant]
  17. PREDNISONE [Concomitant]
  18. PROMETHAZINE [Concomitant]
  19. SENNA [Concomitant]
  20. SIMVASTATIN [Concomitant]

REACTIONS (8)
  - Papilloedema [None]
  - Nausea [None]
  - Vomiting [None]
  - Visual impairment [None]
  - Tremor [None]
  - Headache [None]
  - Posterior reversible encephalopathy syndrome [None]
  - Pulseless electrical activity [None]
